FAERS Safety Report 6929096-X (Version None)
Quarter: 2010Q3

REPORT INFORMATION
  Report Type: 
  Country: None (occurrence: None)
  Receive Date: 20100817
  Receipt Date: 20100511
  Transmission Date: 20110219
  Serious: Yes (Hospitalization, Other)
  Sender: FDA-Public Use
  Company Number: IN-BAXTER-2010BH011393

PATIENT
  Age: 62 Year
  Sex: Male

DRUGS (2)
  1. DIANEAL [Suspect]
     Indication: PERITONEAL DIALYSIS
     Route: 033
     Dates: start: 20100411
  2. DIANEAL [Suspect]
     Route: 033
     Dates: start: 20100415

REACTIONS (3)
  - DIARRHOEA [None]
  - PERITONEAL DIALYSIS COMPLICATION [None]
  - PERITONITIS [None]
